FAERS Safety Report 5334808-5 (Version None)
Quarter: 2007Q2

REPORT INFORMATION
  Report Type: 
  Country: None (occurrence: None)
  Receive Date: 20070525
  Receipt Date: 20060717
  Transmission Date: 20071010
  Serious: Yes (Other)
  Sender: FDA-Public Use
  Company Number: ES-BRISTOL-MYERS SQUIBB COMPANY-13791470

PATIENT
  Age: 51 Year
  Sex: Female

DRUGS (4)
  1. MEGESTROL ACETATE [Suspect]
     Indication: BILIARY CIRRHOSIS PRIMARY
     Dates: start: 20050201
  2. URSODIOL [Suspect]
     Indication: BILIARY CIRRHOSIS PRIMARY
     Dates: start: 20050201
  3. BRONCHODILATOR [Concomitant]
     Indication: ASTHMA
  4. STEROIDS [Concomitant]
     Indication: ASTHMA
     Route: 055

REACTIONS (2)
  - SCLERODERMA [None]
  - SYSTEMIC SCLEROSIS [None]
